FAERS Safety Report 9216744 (Version 1)
Quarter: 2013Q2

REPORT INFORMATION
  Report Type: Spontaneous
  Country: US (occurrence: US)
  Receive Date: 20130408
  Receipt Date: 20130408
  Transmission Date: 20140414
  Serious: No
  Sender: FDA-Public Use
  Company Number: US-PFIZER INC-2013108768

PATIENT
  Age: 41 Year
  Sex: Female
  Weight: 65.76 kg

DRUGS (2)
  1. PRISTIQ [Suspect]
     Indication: DEPRESSION
     Dosage: 50 MG, 1X/DAY
     Route: 048
     Dates: start: 201302
  2. BIOTIN [Concomitant]
     Indication: ALOPECIA
     Dosage: UNK

REACTIONS (1)
  - Alopecia [Not Recovered/Not Resolved]
